FAERS Safety Report 7719047-2 (Version None)
Quarter: 2011Q3

REPORT INFORMATION
  Report Type: 
  Country: None (occurrence: None)
  Receive Date: 20110830
  Receipt Date: 20110823
  Transmission Date: 20111222
  Serious: Yes (Disabling, Other)
  Sender: FDA-Public Use
  Company Number: JP-ABBOTT-11P-087-0724762-00

PATIENT
  Sex: Female
  Weight: 51 kg

DRUGS (9)
  1. ALENDRONATE SODIUM [Concomitant]
     Indication: OSTEOPOROSIS
     Dosage: 35MG/WEEK
     Route: 048
  2. HUMIRA [Suspect]
     Dates: start: 20110601, end: 20110622
  3. SCOPOLAMINE BUTYLBROMIDE [Concomitant]
     Indication: GASTRITIS
     Dosage: 1 TABLET DAILY
     Route: 048
  4. ANTIBIOTICS/RESISTANT LACTIC ACID BACTERIAE [Concomitant]
     Indication: ENTEROCOLITIS
     Route: 048
  5. HUMIRA [Suspect]
     Indication: PSORIATIC ARTHROPATHY
     Route: 058
     Dates: start: 20110117, end: 20110117
  6. ISONIAZID [Concomitant]
     Indication: ANTIBIOTIC PROPHYLAXIS
     Route: 048
     Dates: start: 20110112
  7. LACTOMIN [Concomitant]
     Indication: PRODUCT USED FOR UNKNOWN INDICATION
  8. HUMIRA [Suspect]
     Indication: PUSTULAR PSORIASIS
     Dates: start: 20110131, end: 20110214
  9. HUMIRA [Suspect]
     Dates: start: 20110309, end: 20110525

REACTIONS (5)
  - NAUSEA [None]
  - URTICARIA [None]
  - TINNITUS [None]
  - SUDDEN HEARING LOSS [None]
  - DIZZINESS [None]
